FAERS Safety Report 12037533 (Version 3)
Quarter: 2016Q2

REPORT INFORMATION
  Report Type: Spontaneous
  Country: IT (occurrence: IT)
  Receive Date: 20160208
  Receipt Date: 20160614
  Transmission Date: 20160815
  Serious: Yes (Hospitalization, Disabling, Other)
  Sender: FDA-Public Use
  Company Number: PHHY2016IT011212

PATIENT
  Age: 50 Year
  Sex: Female

DRUGS (10)
  1. TEGRETOL [Concomitant]
     Active Substance: CARBAMAZEPINE
     Indication: PRODUCT USED FOR UNKNOWN INDICATION
     Dosage: 0.5 DF, UNK
     Route: 065
  2. AROMASIN [Concomitant]
     Active Substance: EXEMESTANE
     Indication: BREAST CANCER
     Dosage: 1 DF, QD
     Route: 048
     Dates: start: 20150921
  3. PACLITAXEL. [Concomitant]
     Active Substance: PACLITAXEL
     Indication: HETEROPLASIA
     Dosage: 150 MG, UNK
     Route: 065
     Dates: start: 20150504
  4. PANTOPRAZOLE [Concomitant]
     Active Substance: PANTOPRAZOLE SODIUM
     Indication: PRODUCT USED FOR UNKNOWN INDICATION
     Dosage: 1 DF, UNK
     Route: 065
  5. TARGIN [Concomitant]
     Active Substance: NALOXONE HYDROCHLORIDE\OXYCODONE HYDROCHLORIDE
     Indication: PRODUCT USED FOR UNKNOWN INDICATION
     Dosage: 2 DF, QD
     Route: 065
  6. SOLDESAM [Concomitant]
     Active Substance: DEXAMETHASONE
     Dosage: 1 DF, UNK
     Route: 030
     Dates: start: 20140217
  7. AFINITOR [Suspect]
     Active Substance: EVEROLIMUS
     Indication: BREAST CANCER
     Dosage: 1 DF, QD
     Route: 048
     Dates: start: 20150921, end: 20160127
  8. SOLDESAM [Concomitant]
     Active Substance: DEXAMETHASONE
     Indication: PRODUCT USED FOR UNKNOWN INDICATION
     Dosage: 4 MG, QD
     Route: 065
  9. FLUXUM [Concomitant]
     Active Substance: PARNAPARIN SODIUM
     Indication: PRODUCT USED FOR UNKNOWN INDICATION
     Dosage: 0.4 OT, QD
     Route: 058
  10. ZYRTEC [Concomitant]
     Active Substance: CETIRIZINE HYDROCHLORIDE
     Indication: PRODUCT USED FOR UNKNOWN INDICATION
     Dosage: 1 DF, UNK
     Route: 065

REACTIONS (10)
  - Optic nerve compression [Not Recovered/Not Resolved]
  - Blindness unilateral [Not Recovered/Not Resolved]
  - Nervous system disorder [Unknown]
  - Visual acuity reduced [Not Recovered/Not Resolved]
  - Optic atrophy [Unknown]
  - Mydriasis [Unknown]
  - Urticaria [Unknown]
  - Pruritus [Unknown]
  - Blindness [Unknown]
  - Pupillary reflex impaired [Unknown]

NARRATIVE: CASE EVENT DATE: 20151122
